FAERS Safety Report 19529727 (Version 4)
Quarter: 2021Q3

REPORT INFORMATION
  Report Type: Report from Study
  Country: None (occurrence: IL)
  Receive Date: 20210713
  Receipt Date: 20210825
  Transmission Date: 20211014
  Serious: Yes (Hospitalization)
  Sender: FDA-Public Use
  Company Number: IL-ABBVIE-21K-082-3981620-00

PATIENT
  Age: 85 Year
  Sex: Male

DRUGS (2)
  1. DUODOPA [Suspect]
     Active Substance: CARBIDOPA\LEVODOPA
     Indication: PARKINSON^S DISEASE
     Route: 050
     Dates: start: 20170610
  2. DUODOPA [Suspect]
     Active Substance: CARBIDOPA\LEVODOPA
     Dosage: MORNING DOSAGE(ML)  12.0, CONTINUOUS DOSAGE (ML/H)  4.6, EXTRA DOSAGE (ML)  2.0
     Route: 050

REACTIONS (7)
  - Intussusception [Unknown]
  - Decreased appetite [Unknown]
  - Intestinal haemorrhage [Recovered/Resolved]
  - Incarcerated hernia [Unknown]
  - Discoloured vomit [Recovering/Resolving]
  - Intestinal obstruction [Not Recovered/Not Resolved]
  - Feeling abnormal [Unknown]

NARRATIVE: CASE EVENT DATE: 20210706
